FAERS Safety Report 18252254 (Version 1)
Quarter: 2020Q3

REPORT INFORMATION
  Report Type: Spontaneous
  Country: US (occurrence: US)
  Receive Date: 20200910
  Receipt Date: 20200910
  Transmission Date: 20201103
  Serious: No
  Sender: FDA-Public Use
  Company Number: US-FARMAPROD-202005-0756

PATIENT
  Age: 78 Year
  Sex: Female

DRUGS (13)
  1. LEVOTHYROXINE SODIUM. [Concomitant]
     Active Substance: LEVOTHYROXINE SODIUM
  2. OXERVATE [Suspect]
     Active Substance: CENEGERMIN-BKBJ
     Indication: NEUROTROPHIC KERATOPATHY
     Route: 047
     Dates: start: 20200506
  3. IRON [Concomitant]
     Active Substance: IRON
  4. VITAMINE D [Concomitant]
     Active Substance: CHOLECALCIFEROL
  5. SPIRIVA RESPIMAT [Concomitant]
     Active Substance: TIOTROPIUM BROMIDE
  6. OMEPRAZOLE. [Concomitant]
     Active Substance: OMEPRAZOLE
  7. ROSUVASTATIN CALCIUM. [Concomitant]
     Active Substance: ROSUVASTATIN CALCIUM
  8. VITAMINE C [Concomitant]
     Active Substance: ASCORBIC ACID
  9. PROZAC [Concomitant]
     Active Substance: FLUOXETINE HYDROCHLORIDE
  10. WARFARIN SODIUM. [Concomitant]
     Active Substance: WARFARIN SODIUM
  11. ACICLOVIR [Concomitant]
     Active Substance: ACYCLOVIR
  12. DIAZEPAM. [Concomitant]
     Active Substance: DIAZEPAM
  13. METOPROLOL TARTRATE. [Concomitant]
     Active Substance: METOPROLOL TARTRATE

REACTIONS (6)
  - Paranasal sinus hyposecretion [Unknown]
  - Dry mouth [Unknown]
  - Urine output decreased [Unknown]
  - Dry eye [Unknown]
  - Taste disorder [Unknown]
  - Paraesthesia [Unknown]

NARRATIVE: CASE EVENT DATE: 202005
